FAERS Safety Report 11984790 (Version 8)
Quarter: 2018Q3

REPORT INFORMATION
  Report Type: Report from Study
  Country: JP (occurrence: JP)
  Receive Date: 20160201
  Receipt Date: 20180828
  Transmission Date: 20181010
  Serious: Yes (Hospitalization, Other)
  Sender: FDA-Public Use
  Company Number: JP-EISAI MEDICAL RESEARCH-EC-2016-014047

PATIENT
  Age: 68 Year
  Sex: Female
  Weight: 61 kg

DRUGS (17)
  1. LENVIMA [Suspect]
     Active Substance: LENVATINIB
     Indication: PAPILLARY THYROID CANCER
     Route: 048
     Dates: start: 20150714, end: 20150715
  2. RINDERON V [Concomitant]
     Active Substance: BETAMETHASONE VALERATE
  3. MUCOSOL VAN [Concomitant]
  4. BISOLVON [Concomitant]
     Active Substance: BROMHEXINE HYDROCHLORIDE
  5. TAKEPRON [Concomitant]
     Active Substance: LANSOPRAZOLE
  6. LEVOTHYROXINE SODIUM HYDRATE [Concomitant]
     Active Substance: LEVOTHYROXINE SODIUM
  7. PYDOXAL [Concomitant]
     Active Substance: PYRIDOXAL
  8. LENVIMA [Suspect]
     Active Substance: LENVATINIB
     Route: 048
     Dates: start: 20150716, end: 20150716
  9. LENVIMA [Suspect]
     Active Substance: LENVATINIB
     Route: 048
     Dates: start: 20160309, end: 20160323
  10. MYSER [Concomitant]
     Active Substance: DIFLUPREDNATE
  11. CANDESARTAN. [Concomitant]
     Active Substance: CANDESARTAN
  12. LENVIMA [Suspect]
     Active Substance: LENVATINIB
     Route: 048
     Dates: start: 20160525
  13. LENVIMA [Suspect]
     Active Substance: LENVATINIB
     Route: 048
     Dates: start: 20150717, end: 20151030
  14. LENVIMA [Suspect]
     Active Substance: LENVATINIB
     Route: 048
     Dates: start: 20151216, end: 20160308
  15. ADALAT [Concomitant]
     Active Substance: NIFEDIPINE
  16. NORVASC [Concomitant]
     Active Substance: AMLODIPINE BESYLATE
  17. LANSOPRAZOLE. [Concomitant]
     Active Substance: LANSOPRAZOLE

REACTIONS (1)
  - Perforation [Recovered/Resolved]

NARRATIVE: CASE EVENT DATE: 20151030
